FAERS Safety Report 25596552 (Version 1)
Quarter: 2025Q3

REPORT INFORMATION
  Report Type: Report from Study
  Country: US (occurrence: US)
  Receive Date: 20250723
  Receipt Date: 20250723
  Transmission Date: 20251021
  Serious: Yes (Hospitalization)
  Sender: PFIZER
  Company Number: US-PFIZER INC-PV202500086939

PATIENT
  Sex: Male

DRUGS (2)
  1. UNASYN [Suspect]
     Active Substance: AMPICILLIN SODIUM\SULBACTAM SODIUM
  2. CIPRODEX [Concomitant]
     Active Substance: CIPROFLOXACIN HYDROCHLORIDE\DEXAMETHASONE
     Indication: Prophylaxis
     Dosage: UNK, 2X/DAY

REACTIONS (1)
  - Rash morbilliform [Recovered/Resolved]
